FAERS Safety Report 9787792 (Version 1)
Quarter: 2013Q4

REPORT INFORMATION
  Report Type: Spontaneous
  Country: US (occurrence: US)
  Receive Date: 20131230
  Receipt Date: 20131230
  Transmission Date: 20140711
  Serious: No
  Sender: FDA-Public Use
  Company Number: US-PFIZER INC-2013372577

PATIENT
  Age: 8 Year
  Sex: Female

DRUGS (2)
  1. GEODON [Suspect]
     Indication: SCHIZOPHRENIA
     Dosage: UNK
     Route: 048
  2. GEODON [Suspect]
     Indication: ACUTE PSYCHOSIS

REACTIONS (2)
  - Drug administered to patient of inappropriate age [Unknown]
  - Dysphagia [Unknown]
